FAERS Safety Report 6552298-1 (Version None)
Quarter: 2010Q1

REPORT INFORMATION
  Report Type: 
  Country: None (occurrence: None)
  Receive Date: 20100126
  Receipt Date: 20100115
  Transmission Date: 20100710
  Serious: Yes (Hospitalization, Other)
  Sender: FDA-Public Use
  Company Number: US-AMGEN-KDL344938

PATIENT
  Sex: Female
  Weight: 54.5 kg

DRUGS (13)
  1. PROCRIT [Suspect]
     Indication: ANAEMIA
     Route: 058
     Dates: start: 20081121, end: 20090408
  2. PEGASYS [Concomitant]
     Route: 058
     Dates: start: 20081124, end: 20090403
  3. ERYTHROMYCIN [Concomitant]
     Dates: start: 20081125
  4. GLIPIZIDE [Concomitant]
     Route: 048
  5. ASPIRIN [Concomitant]
  6. MULTI-VITAMINS [Concomitant]
     Route: 048
  7. ATIVAN [Concomitant]
  8. RIBAVIRIN [Concomitant]
     Route: 048
     Dates: start: 20081104, end: 20090403
  9. LISINOPRIL [Concomitant]
     Route: 048
  10. INTERFERON [Concomitant]
     Dates: start: 20080411, end: 20090904
  11. IRON [Concomitant]
  12. INSULIN [Concomitant]
  13. UNSPECIFIED STEROIDS [Concomitant]

REACTIONS (6)
  - APLASIA PURE RED CELL [None]
  - DYSPNOEA [None]
  - FATIGUE [None]
  - HYPERGLYCAEMIA [None]
  - PYREXIA [None]
  - TRANSFUSION REACTION [None]
